FAERS Safety Report 6764509-8 (Version None)
Quarter: 2010Q2

REPORT INFORMATION
  Report Type: 
  Country: None (occurrence: None)
  Receive Date: 20100610
  Receipt Date: 20100528
  Transmission Date: 20101027
  Serious: Yes (Hospitalization, Other)
  Sender: FDA-Public Use
  Company Number: PHHY2010DE23429

PATIENT
  Sex: Male
  Weight: 82 kg

DRUGS (10)
  1. ALISKIREN ALI+ [Suspect]
     Indication: HYPERTENSION
     Dosage: 300 MG PER DAY
     Route: 048
     Dates: start: 20090421
  2. LANTUS [Concomitant]
     Indication: DIABETES MELLITUS
     Dosage: 10 IU PER DAY
     Route: 058
     Dates: start: 20060101
  3. ANGIOTENSIN CONVERTING ENZYME BLOCKERS [Concomitant]
     Dosage: UNK
     Dates: end: 20091220
  4. METOPROLOL SUCCINATE [Concomitant]
     Indication: HYPERTENSION
     Dosage: 1 DF, QD
     Route: 048
     Dates: start: 20060101
  5. TORSEMIDE [Concomitant]
     Indication: CARDIAC FAILURE
     Dosage: 10 MG PER DAY
     Route: 048
     Dates: start: 20090101
  6. ASPIRIN [Concomitant]
     Indication: MYOCARDIAL ISCHAEMIA
     Dosage: 100 MG PER DAY
     Route: 048
     Dates: start: 20060101
  7. SIMVAHEXAL [Concomitant]
     Indication: ARTERIOSCLEROSIS
     Dosage: 40 MG PER DAY
     Route: 048
     Dates: start: 20080101
  8. CYMBALTA [Concomitant]
     Indication: NEUROPATHY PERIPHERAL
     Dosage: 30 MG PER DAY
     Route: 048
     Dates: start: 20080101
  9. ISCOVER [Concomitant]
     Indication: ANGIOPATHY
     Dosage: 75 MG PER DAY
     Route: 048
     Dates: start: 20090101, end: 20090101
  10. LEVOTHYROXINE SODIUM [Concomitant]
     Indication: HYPOTHYROIDISM
     Dosage: 150 MG PER DAY
     Route: 048
     Dates: start: 20060101

REACTIONS (4)
  - ANGINA PECTORIS [None]
  - DYSPNOEA [None]
  - GLYCOSYLATED HAEMOGLOBIN INCREASED [None]
  - VASCULAR GRAFT [None]
